FAERS Safety Report 18946137 (Version 1)
Quarter: 2021Q1

REPORT INFORMATION
  Report Type: Not Available
  Country: None (occurrence: None)
  Receive Date: 20210226
  Receipt Date: 20210226
  Transmission Date: 20210420
  Serious: Yes (Other)
  Sender: FDA-Public Use
  Company Number: US-AKORN-162395

PATIENT
  Age: 41 Year
  Sex: Female

DRUGS (1)
  1. MYORISAN [Suspect]
     Active Substance: ISOTRETINOIN

REACTIONS (7)
  - Weight increased [None]
  - Hepatitis [None]
  - Pain [None]
  - Scab [None]
  - Lip blister [None]
  - Joint stiffness [None]
  - Feeling abnormal [None]
